FAERS Safety Report 7541506-6 (Version None)
Quarter: 2011Q2

REPORT INFORMATION
  Report Type: 
  Country: None (occurrence: None)
  Receive Date: 20110613
  Receipt Date: 20110606
  Transmission Date: 20111010
  Serious: No
  Sender: FDA-Public Use
  Company Number: US-BIOGENIDEC-2011BI020970

PATIENT
  Age: 67 Year
  Sex: Female

DRUGS (1)
  1. AVONEX [Suspect]
     Indication: MULTIPLE SCLEROSIS
     Route: 030
     Dates: start: 20090514

REACTIONS (6)
  - MOBILITY DECREASED [None]
  - MUSCULAR WEAKNESS [None]
  - HYPERHIDROSIS [None]
  - GAIT DISTURBANCE [None]
  - BALANCE DISORDER [None]
  - DEPRESSION [None]
